FAERS Safety Report 23275902 (Version 1)
Quarter: 2023Q4

REPORT INFORMATION
  Report Type: Spontaneous
  Country: US (occurrence: US)
  Receive Date: 20231208
  Receipt Date: 20231208
  Transmission Date: 20240110
  Serious: No
  Sender: FDA-Public Use
  Company Number: US-MYLANLABS-2023M1128809

PATIENT
  Sex: Female
  Weight: 49.9 kg

DRUGS (1)
  1. ESTRADIOL [Suspect]
     Active Substance: ESTRADIOL
     Indication: Hormone therapy
     Dosage: 0.01 PERCENT, BIWEEKLY
     Route: 067

REACTIONS (1)
  - Drug ineffective [Unknown]
